FAERS Safety Report 7280843-X (Version None)
Quarter: 2011Q1

REPORT INFORMATION
  Report Type: 
  Country: None (occurrence: None)
  Receive Date: 20110208
  Receipt Date: 20110202
  Transmission Date: 20110831
  Serious: No
  Sender: FDA-Public Use
  Company Number: US-PFIZER INC-2011024626

PATIENT
  Sex: Male

DRUGS (2)
  1. NICOTROL [Suspect]
     Dosage: UNK
  2. BENTYL [Concomitant]
     Indication: IRRITABLE BOWEL SYNDROME
     Dosage: UNK

REACTIONS (5)
  - FEELING ABNORMAL [None]
  - HEADACHE [None]
  - DIZZINESS [None]
  - ABDOMINAL PAIN [None]
  - ABDOMINAL PAIN UPPER [None]
